FAERS Safety Report 25627975 (Version 2)
Quarter: 2025Q4

REPORT INFORMATION
  Report Type: Report from Study
  Country: CN (occurrence: CN)
  Receive Date: 20250731
  Receipt Date: 20251006
  Transmission Date: 20260118
  Serious: Yes (Hospitalization)
  Sender: DAIICHI
  Company Number: CN-DSJP-DS-2025-155475-CN

PATIENT
  Age: 38 Year
  Sex: Female
  Weight: 86 kg

DRUGS (33)
  1. ENHERTU [Suspect]
     Active Substance: FAM-TRASTUZUMAB DERUXTECAN-NXKI
     Indication: Breast cancer
     Dosage: UNK
     Route: 041
     Dates: start: 20250214, end: 20250214
  2. ENHERTU [Suspect]
     Active Substance: FAM-TRASTUZUMAB DERUXTECAN-NXKI
     Dosage: UNK
     Route: 041
     Dates: start: 20250307, end: 20250307
  3. ENHERTU [Suspect]
     Active Substance: FAM-TRASTUZUMAB DERUXTECAN-NXKI
     Dosage: UNK
     Route: 041
     Dates: start: 20250328, end: 20250328
  4. ENHERTU [Suspect]
     Active Substance: FAM-TRASTUZUMAB DERUXTECAN-NXKI
     Dosage: UNK
     Route: 041
     Dates: start: 20250418, end: 20250418
  5. ENHERTU [Suspect]
     Active Substance: FAM-TRASTUZUMAB DERUXTECAN-NXKI
     Dosage: UNK
     Route: 041
     Dates: start: 20250509, end: 20250509
  6. ENHERTU [Suspect]
     Active Substance: FAM-TRASTUZUMAB DERUXTECAN-NXKI
     Dosage: UNK
     Route: 041
     Dates: start: 20250605, end: 20250605
  7. ENHERTU [Suspect]
     Active Substance: FAM-TRASTUZUMAB DERUXTECAN-NXKI
     Dosage: UNK
     Route: 041
     Dates: start: 20250627, end: 20250627
  8. GOSERELIN ACETATE [Concomitant]
     Active Substance: GOSERELIN ACETATE
     Indication: Chemotherapy
     Dosage: 10.8 MG, ONCE EVERY 12 WEEKS
     Route: 058
     Dates: start: 202107
  9. DENOSUMAB [Concomitant]
     Active Substance: DENOSUMAB
     Indication: Prophylaxis
     Dosage: 120 MG, ONCE EVERY 4 WK
     Route: 058
     Dates: start: 202108
  10. DENOSUMAB [Concomitant]
     Active Substance: DENOSUMAB
     Indication: Bone disorder
  11. LIDOCAINE HYDROCHLORIDE [Concomitant]
     Active Substance: LIDOCAINE HYDROCHLORIDE
     Indication: Local anaesthesia
     Dosage: 0.2 G, SINGLE,OTHER,  LOCAL ANESTHESIA USE
     Route: 050
     Dates: start: 20250214, end: 20250214
  12. ILAPRAZOLE [Concomitant]
     Active Substance: ILAPRAZOLE
     Indication: Dyspepsia
     Dosage: 10 MG, QD, OTHER, SWALLOW}
     Route: 050
     Dates: start: 20250214, end: 20250214
  13. ILAPRAZOLE [Concomitant]
     Active Substance: ILAPRAZOLE
     Indication: Prophylaxis
  14. NETUPITANT AND PALONOSETRON HYDROCHLORIDE [Concomitant]
     Indication: Prophylaxis of nausea and vomiting
     Dosage: 1 DOSAGE FORM, QD
     Route: 048
     Dates: start: 20250214, end: 20250214
  15. DIPHENHYDRAMINE [Concomitant]
     Active Substance: DIPHENHYDRAMINE
     Indication: Allergy prophylaxis
     Dosage: 40 MG, QD
     Route: 030
     Dates: start: 20250214, end: 20250214
  16. GLUTATHIONE [Concomitant]
     Active Substance: GLUTATHIONE
     Indication: Liver injury
     Dosage: 2.7 G, QD
     Route: 041
     Dates: start: 20250214, end: 20250214
  17. GLUTATHIONE [Concomitant]
     Active Substance: GLUTATHIONE
     Indication: Prophylaxis
     Dosage: 1.8 G, QD
     Route: 041
     Dates: start: 20250221, end: 20250221
  18. MAGNESIUM ISOGLYCYRRHIZINATE [Concomitant]
     Active Substance: MAGNESIUM ISOGLYCYRRHIZINATE
     Indication: Liver injury
     Dosage: 150 MG, QD
     Route: 041
     Dates: start: 20250214, end: 20250214
  19. MAGNESIUM ISOGLYCYRRHIZINATE [Concomitant]
     Active Substance: MAGNESIUM ISOGLYCYRRHIZINATE
     Indication: Prophylaxis
  20. PEGYLATED RECOMBINANT HUMAN GRANULOCYTE COLONY STIMULATING FACTOR [Concomitant]
     Indication: Prophylaxis
     Dosage: 6 MG, QD
     Route: 058
     Dates: start: 20250215, end: 20250215
  21. PEGYLATED RECOMBINANT HUMAN GRANULOCYTE COLONY STIMULATING FACTOR [Concomitant]
     Indication: Neutropenia
  22. PEGYLATED RECOMBINANT HUMAN GRANULOCYTE COLONY STIMULATING FACTOR [Concomitant]
     Indication: White blood cell count decreased
  23. LECITHIN [Concomitant]
     Active Substance: LECITHIN
     Indication: Liver injury
     Dosage: 456 MG, TID
     Route: 048
     Dates: start: 202412, end: 202501
  24. LECITHIN [Concomitant]
     Active Substance: LECITHIN
     Indication: Prophylaxis
     Dosage: 456 MG, TID
     Route: 048
     Dates: start: 20250225, end: 20250227
  25. LECITHIN [Concomitant]
     Active Substance: LECITHIN
     Indication: Alanine aminotransferase increased
  26. LECITHIN [Concomitant]
     Active Substance: LECITHIN
     Indication: Aspartate aminotransferase increased
  27. CIMETIDINE [Concomitant]
     Active Substance: CIMETIDINE
     Indication: Allergy prophylaxis
     Dosage: 0.2 G, QD
     Route: 042
     Dates: start: 20250214, end: 20250214
  28. DEXAMETHASONE SODIUM PHOSPHATE [Concomitant]
     Active Substance: DEXAMETHASONE SODIUM PHOSPHATE
     Indication: Prophylaxis of nausea and vomiting
     Dosage: 10 MG, QD
     Route: 042
     Dates: start: 20250214, end: 20250214
  29. DEXAMETHASONE SODIUM PHOSPHATE [Concomitant]
     Active Substance: DEXAMETHASONE SODIUM PHOSPHATE
     Indication: Allergy prophylaxis
     Dosage: 3 MG, QD
     Route: 048
     Dates: start: 20250222, end: 20250222
  30. COMPOUND GLUTAMINE [LEVOGLUTAMIDE;SODIUM GUALENATE] [Concomitant]
     Indication: Diarrhoea
     Dosage: 2 DOSAGE FORM, AS NEEDED
     Route: 048
     Dates: start: 202502, end: 202502
  31. MONTMORILLONITE [Concomitant]
     Active Substance: MONTMORILLONITE
     Indication: Diarrhoea
     Dosage: 3 G, QD
     Route: 048
     Dates: start: 20250221, end: 20250222
  32. MONTMORILLONITE [Concomitant]
     Active Substance: MONTMORILLONITE
     Dosage: 3 G, TID
     Route: 048
     Dates: start: 20250222, end: 20250223
  33. RECOMBINANT HUMAN BASIC FIBROBLAST GROWTH FACTOR [Concomitant]
     Indication: Product used for unknown indication
     Dosage: 150 IU, AS NEEDED
     Route: 061
     Dates: start: 20250221, end: 20250221

REACTIONS (1)
  - Myelosuppression [Recovered/Resolved]

NARRATIVE: CASE EVENT DATE: 20250221
